FAERS Safety Report 15943435 (Version 1)
Quarter: 2019Q1

REPORT INFORMATION
  Report Type: Spontaneous
  Country: US (occurrence: US)
  Receive Date: 20190122
  Receipt Date: 20190122
  Transmission Date: 20190417
  Serious: No
  Sender: FDA-Public Use
  Company Number: None

PATIENT
  Age: 68 Year
  Sex: Female
  Weight: 81 kg

DRUGS (15)
  1. VIALMAG [Concomitant]
  2. VITAMIN D [Concomitant]
     Active Substance: CHOLECALCIFEROL
  3. RANITIDINE HCL [Concomitant]
     Active Substance: RANITIDINE HYDROCHLORIDE
  4. TRAMADO [Concomitant]
  5. VITAMIN C 500 [Concomitant]
  6. PANTOPRAZOLE SODIUM. [Concomitant]
     Active Substance: PANTOPRAZOLE SODIUM
  7. ALALFA COMPLEX [Concomitant]
  8. VITALEA GOLD (ALL SHAKLEE PRODUCTS) [Concomitant]
  9. PROLIA [Suspect]
     Active Substance: DENOSUMAB
     Indication: BONE DISORDER
     Dates: start: 20180627, end: 20181220
  10. LEVOTHYROXINE. [Concomitant]
     Active Substance: LEVOTHYROXINE
  11. LOSARTAN POTASSIUM. [Concomitant]
     Active Substance: LOSARTAN POTASSIUM
  12. CPAP [Suspect]
     Active Substance: DEVICE
  13. CLARITIN [Concomitant]
     Active Substance: LORATADINE
  14. OSTEOMATRIX [Concomitant]
  15. PROBIOTIC [Concomitant]
     Active Substance: PROBIOTICS NOS

REACTIONS (7)
  - Hypoaesthesia [None]
  - Paraesthesia [None]
  - Myalgia [None]
  - Pain in extremity [None]
  - Flatulence [None]
  - Cystitis [None]
  - Muscle spasms [None]
